FAERS Safety Report 7699346-3 (Version None)
Quarter: 2011Q3

REPORT INFORMATION
  Report Type: 
  Country: None (occurrence: None)
  Receive Date: 20110819
  Receipt Date: 20110803
  Transmission Date: 20111222
  Serious: Yes (Other)
  Sender: FDA-Public Use
  Company Number: US-BAYER-2011-014114

PATIENT
  Age: 34 Year
  Sex: Female

DRUGS (5)
  1. ACETAMINOPHEN AND HYDROCODONE BITARTRATE [Concomitant]
  2. MULTI-VITAMIN [Concomitant]
  3. YAZ [Suspect]
     Indication: HORMONE LEVEL ABNORMAL
  4. CALCIUM CARBONATE [Concomitant]
  5. YAZ [Suspect]
     Indication: ACNE
     Dosage: UNK
     Dates: start: 20070223, end: 20090401

REACTIONS (5)
  - MIGRAINE [None]
  - CHOLELITHIASIS [None]
  - GALLBLADDER DISORDER [None]
  - CHOLECYSTITIS CHRONIC [None]
  - PAIN [None]
